FAERS Safety Report 7525487-7 (Version None)
Quarter: 2011Q2

REPORT INFORMATION
  Report Type: 
  Country: None (occurrence: None)
  Receive Date: 20110606
  Receipt Date: 20110526
  Transmission Date: 20111010
  Serious: Yes (Other)
  Sender: FDA-Public Use
  Company Number: FR-ROCHE-779741

PATIENT
  Sex: Male

DRUGS (2)
  1. CELLCEPT [Suspect]
     Indication: RENAL TRANSPLANT
     Route: 065
     Dates: start: 20060501, end: 20070501
  2. NEORAL [Suspect]
     Indication: RENAL TRANSPLANT
     Route: 065
     Dates: start: 20060501

REACTIONS (1)
  - LENTIGO MALIGNA STAGE UNSPECIFIED [None]
